FAERS Safety Report 18884308 (Version 1)
Quarter: 2021Q1

REPORT INFORMATION
  Report Type: Spontaneous
  Country: US (occurrence: US)
  Receive Date: 20210211
  Receipt Date: 20210211
  Transmission Date: 20210420
  Serious: No
  Sender: FDA-Public Use
  Company Number: None

PATIENT
  Age: 44 Year
  Sex: Male
  Weight: 117.45 kg

DRUGS (15)
  1. COSENTYX [Concomitant]
     Active Substance: SECUKINUMAB
  2. COENZYME Q10 [Concomitant]
     Active Substance: DIETARY SUPPLEMENT\UBIDECARENONE
  3. METHOTREXATE. [Concomitant]
     Active Substance: METHOTREXATE
  4. TESTOSTERONE. [Concomitant]
     Active Substance: TESTOSTERONE
  5. VITAMIN C [Concomitant]
     Active Substance: ASCORBIC ACID
  6. BREO ELLIPTA [Concomitant]
     Active Substance: FLUTICASONE FUROATE\VILANTEROL TRIFENATATE
  7. LISINOPRIL. [Concomitant]
     Active Substance: LISINOPRIL
  8. VITAMIN B COMPLEX [Concomitant]
     Active Substance: CYANOCOBALAMIN\DEXPANTHENOL\NIACINAMIDE\PYRIDOXINE HYDROCHLORIDE\RIBOFLAVIN 5^-PHOSPHATE SODIUM\THIAMINE HYDROCHLORIDE\VITAMIN B COMPLEX
  9. VITAMIN D [Concomitant]
     Active Substance: VITAMIN D NOS
  10. AMLODIPINE [Concomitant]
     Active Substance: AMLODIPINE BESYLATE
  11. PROAIR HFA [Suspect]
     Active Substance: ALBUTEROL SULFATE
     Indication: ASTHMA
     Dosage: ?          QUANTITY:2 PUFF(S);?
     Route: 055
     Dates: start: 20210210
  12. RED YEAST RICE [Concomitant]
     Active Substance: DIETARY SUPPLEMENT
  13. BIOTIN [Concomitant]
     Active Substance: BIOTIN
  14. FISH OIL [Concomitant]
     Active Substance: FISH OIL
  15. FOLIC ACID. [Concomitant]
     Active Substance: FOLIC ACID

REACTIONS (1)
  - Device malfunction [None]

NARRATIVE: CASE EVENT DATE: 20210210
